FAERS Safety Report 25198674 (Version 1)
Quarter: 2025Q2

REPORT INFORMATION
  Report Type: Other
  Country: JP (occurrence: JP)
  Receive Date: 20250415
  Receipt Date: 20250415
  Transmission Date: 20250717
  Serious: Yes (Other)
  Sender: Kanchan Healthcare
  Company Number: JP-Kanchan Healthcare INC-2174919

PATIENT
  Age: 56 Year
  Sex: Male

DRUGS (9)
  1. CYCLOPHOSPHAMIDE [Suspect]
     Active Substance: CYCLOPHOSPHAMIDE
     Indication: Diffuse large B-cell lymphoma
  2. RITUXIMAB [Suspect]
     Active Substance: RITUXIMAB
  3. METHYLPREDNISOLONE [Suspect]
     Active Substance: METHYLPREDNISOLONE
  4. CISPLATIN [Suspect]
     Active Substance: CISPLATIN
  5. CYTARABINE [Suspect]
     Active Substance: CYTARABINE
  6. ETOPOSIDE [Suspect]
     Active Substance: ETOPOSIDE
  7. PREDNISONE [Suspect]
     Active Substance: PREDNISONE
  8. VINCRISTINE SULFATE [Suspect]
     Active Substance: VINCRISTINE SULFATE
  9. DOXORUBICIN HYDROCHLORIDE [Suspect]
     Active Substance: DOXORUBICIN HYDROCHLORIDE

REACTIONS (1)
  - Sinus node dysfunction [Unknown]
